FAERS Safety Report 13755920 (Version 1)
Quarter: 2017Q3

REPORT INFORMATION
  Report Type: Report from Study
  Country: US (occurrence: US)
  Receive Date: 20170714
  Receipt Date: 20170714
  Transmission Date: 20171127
  Serious: Yes (Other)
  Sender: FDA-Public Use
  Company Number: PHHY2017US073631

PATIENT
  Age: 53 Year
  Sex: Female

DRUGS (22)
  1. ZOMETA [Concomitant]
     Active Substance: ZOLEDRONIC ACID
     Indication: OSTEOPOROSIS
     Dosage: QUARTERLY
     Route: 042
  2. PEPTO-BISMOL [Concomitant]
     Active Substance: BISMUTH SUBSALICYLATE
     Indication: DYSPEPSIA
     Dosage: UNK UNK, PRN
     Route: 065
  3. ALLEGRA [Concomitant]
     Active Substance: FEXOFENADINE HYDROCHLORIDE
     Dosage: 100 MG, BID
     Route: 048
  4. OMEPRAZOLE. [Concomitant]
     Active Substance: OMEPRAZOLE
     Indication: DYSPEPSIA
     Dosage: 40 MG, BID
     Route: 048
  5. TYLENOL [Concomitant]
     Active Substance: ACETAMINOPHEN
     Indication: MIGRAINE
     Dosage: 500 MG, BID
     Route: 048
  6. VALIUM [Concomitant]
     Active Substance: DIAZEPAM
     Indication: ANXIETY
     Dosage: 5 MG, QD, PRN
     Route: 048
  7. BENADRYL [Concomitant]
     Active Substance: DIPHENHYDRAMINE HYDROCHLORIDE
     Indication: SYSTEMIC MASTOCYTOSIS
     Dosage: 25 MG, QHS
     Route: 048
  8. MONTELUKAST SODIUM. [Concomitant]
     Active Substance: MONTELUKAST SODIUM
     Indication: ASTHMA
     Dosage: 10 MG, QD
     Route: 048
  9. ALPRAZOLAM. [Concomitant]
     Active Substance: ALPRAZOLAM
     Indication: ANXIETY
     Dosage: 0.25 MG, PRN
     Route: 048
  10. AMITRIPTYLINE HCL [Concomitant]
     Active Substance: AMITRIPTYLINE
     Indication: ANXIETY
     Dosage: 25 MG, QHS
     Route: 048
  11. HYOSCYAMINE. [Concomitant]
     Active Substance: HYOSCYAMINE
     Indication: ABDOMINAL PAIN
     Dosage: 0.375 MG, Q12H
     Route: 048
  12. PROAIR HFA [Concomitant]
     Active Substance: ALBUTEROL SULFATE
     Indication: ASTHMA
     Dosage: 108 UG/ACT 2 PUFFS Q4H, PRN
     Route: 065
  13. ZANTAC [Concomitant]
     Active Substance: RANITIDINE HYDROCHLORIDE
     Indication: DYSPEPSIA
     Dosage: 150 MG, BID
     Route: 048
  14. DULERA [Concomitant]
     Active Substance: FORMOTEROL FUMARATE DIHYDRATE\MOMETASONE FUROATE
     Indication: DYSPNOEA
     Dosage: UNK
     Route: 065
     Dates: start: 20160915
  15. ALLEGRA [Concomitant]
     Active Substance: FEXOFENADINE HYDROCHLORIDE
     Indication: SYSTEMIC MASTOCYTOSIS
     Dosage: 180 MG, BID
     Route: 048
     Dates: start: 20160623
  16. EPIPEN [Concomitant]
     Active Substance: EPINEPHRINE
     Indication: PRODUCT USED FOR UNKNOWN INDICATION
     Dosage: 0.3 MG/0.3 ML INJECTION SOLUTION AAAUTO INJECTION
     Route: 065
  17. TUMS [Concomitant]
     Active Substance: CALCIUM CARBONATE
     Indication: DYSPEPSIA
     Dosage: 1 DF, QD, PRN
     Route: 065
  18. SUDAFED [Concomitant]
     Active Substance: PSEUDOEPHEDRINE HYDROCHLORIDE
     Indication: NASAL CONGESTION
     Dosage: 1 DF, Q4H, PRN
     Route: 065
  19. ZYRTEC [Concomitant]
     Active Substance: CETIRIZINE HYDROCHLORIDE
     Indication: SYSTEMIC MASTOCYTOSIS
     Dosage: 10 MG, BID, PRN
     Route: 048
  20. DULERA [Concomitant]
     Active Substance: FORMOTEROL FUMARATE DIHYDRATE\MOMETASONE FUROATE
     Indication: NON-CARDIAC CHEST PAIN
  21. RYDAPT [Suspect]
     Active Substance: MIDOSTAURIN
     Indication: SYSTEMIC MASTOCYTOSIS
     Dosage: 100 MG, BID
     Route: 065
     Dates: start: 20160623
  22. TRAMADOL. [Concomitant]
     Active Substance: TRAMADOL
     Indication: MIGRAINE
     Dosage: 50 MG, Q6H
     Route: 048

REACTIONS (16)
  - Contusion [Recovered/Resolved]
  - Pneumonia [Recovered/Resolved]
  - Anaemia [Not Recovered/Not Resolved]
  - Neutropenia [Recovered/Resolved]
  - Rash maculo-papular [Recovered/Resolved]
  - Chest pain [Recovered/Resolved]
  - Upper respiratory tract infection [Recovered/Resolved]
  - Nausea [Recovered/Resolved]
  - Chest pain [Recovered/Resolved]
  - Constipation [Not Recovered/Not Resolved]
  - Dizziness [Recovered/Resolved]
  - Neutropenia [Recovered/Resolved]
  - Cough [Recovered/Resolved]
  - Anaemia [Recovered/Resolved]
  - Thrombocytopenia [Recovered/Resolved]
  - Fatigue [Recovered/Resolved]

NARRATIVE: CASE EVENT DATE: 201606
